FAERS Safety Report 7422900-0 (Version None)
Quarter: 2011Q2

REPORT INFORMATION
  Report Type: 
  Country: None (occurrence: None)
  Receive Date: 20110414
  Receipt Date: 20110414
  Transmission Date: 20111010
  Serious: Yes (Life-Threatening)
  Sender: FDA-Public Use
  Company Number: None

PATIENT
  Age: 14 Year
  Sex: Male
  Weight: 56.6996 kg

DRUGS (1)
  1. SINGULAIR [Suspect]
     Indication: ASTHMA
     Dosage: 2 X A DAY PO
     Route: 048
     Dates: start: 20110403, end: 20110409

REACTIONS (6)
  - INSOMNIA [None]
  - SCREAMING [None]
  - SUICIDAL BEHAVIOUR [None]
  - AGITATION [None]
  - NERVOUSNESS [None]
  - AGGRESSION [None]
